FAERS Safety Report 7905824-1 (Version None)
Quarter: 2011Q4

REPORT INFORMATION
  Report Type: 
  Country: None (occurrence: None)
  Receive Date: 20111108
  Receipt Date: 20111102
  Transmission Date: 20120403
  Serious: Yes (Disabling)
  Sender: FDA-Public Use
  Company Number: GER/UKI/11/0021507

PATIENT
  Age: 67 Year
  Sex: Female
  Weight: 57 kg

DRUGS (6)
  1. CALCIUM AND VITAMIN D (LEKOVIT CA) [Concomitant]
  2. EPROSARTAN (EPROSARTAN) [Concomitant]
  3. ALENDRONATE SODIUM [Suspect]
     Indication: OSTEOPOROSIS
     Dosage: 70 MG, ORAL
     Dates: start: 20110117
  4. AMLODIPINE [Concomitant]
  5. FLUOXETINE HYDROCHLORIDE [Concomitant]
  6. CLENIL MODULITE (BECLOMETASONE DIPROPIONATE) [Concomitant]

REACTIONS (1)
  - MICTURITION URGENCY [None]
